FAERS Safety Report 5354592-9 (Version None)
Quarter: 2007Q2

REPORT INFORMATION
  Report Type: 
  Country: None (occurrence: None)
  Receive Date: 20070611
  Receipt Date: 20070604
  Transmission Date: 20071010
  Serious: Yes (Hospitalization)
  Sender: FDA-Public Use
  Company Number: 2007SP005200

PATIENT
  Age: 83 Year
  Sex: Male

DRUGS (16)
  1. IMDUR [Suspect]
     Indication: DRUG USE FOR UNKNOWN INDICATION
     Dosage: SEE IMAGE
     Route: 048
     Dates: start: 20070115, end: 20070301
  2. IMDUR [Suspect]
     Indication: DRUG USE FOR UNKNOWN INDICATION
     Dosage: SEE IMAGE
     Route: 048
     Dates: start: 20060101
  3. IMDUR [Suspect]
     Indication: DRUG USE FOR UNKNOWN INDICATION
     Dosage: SEE IMAGE
     Route: 048
     Dates: start: 20070301
  4. ATACAND [Concomitant]
  5. METOPROLOL SUCCINATE [Concomitant]
  6. FUROSEMIDE [Concomitant]
  7. NORVASC [Concomitant]
  8. PLAVIX [Concomitant]
  9. OMEPRAZOLE MAGNESIUM [Concomitant]
  10. ASPIRIN [Concomitant]
  11. COLACE [Concomitant]
  12. ACETAMINOPHEN [Concomitant]
  13. LIPITOR [Concomitant]
  14. NPH INSULIN [Concomitant]
  15. MORPHINE [Concomitant]
  16. NITROGLYCERIN [Concomitant]

REACTIONS (3)
  - BLOOD GLUCOSE INCREASED [None]
  - HALLUCINATION, VISUAL [None]
  - TINNITUS [None]
